FAERS Safety Report 9896073 (Version 2)
Quarter: 2014Q1

REPORT INFORMATION
  Report Type: Spontaneous
  Country: US (occurrence: US)
  Receive Date: 20140213
  Receipt Date: 20140213
  Transmission Date: 20141002
  Serious: No
  Sender: FDA-Public Use
  Company Number: US-BRISTOL-MYERS SQUIBB COMPANY-19040260

PATIENT
  Age: 69 Year
  Sex: Female
  Weight: 61.22 kg

DRUGS (12)
  1. ABATACEPT SUBQ INJECTION 125MG/ML [Suspect]
     Dosage: 125MG/ML PFS (4 PACK)
  2. FUROSEMIDE [Concomitant]
  3. POTASSIUM [Concomitant]
     Dosage: TAB 75MG
     Route: 048
  4. ATENOLOL [Concomitant]
     Dosage: TAB 50MG
     Route: 048
  5. PREVACID [Concomitant]
     Dosage: TAB 30MG STB
  6. CITRACAL + D [Concomitant]
     Dosage: TAB
  7. NAPROXEN [Concomitant]
  8. FOSAMAX [Concomitant]
     Dosage: TAB 70 MG
  9. VITAMIN D [Concomitant]
     Dosage: 1DF=1000 UNIT
  10. TYLENOL ARTHRITIS [Concomitant]
     Dosage: TAB
  11. MULTIVITAMINS + MINERALS [Concomitant]
  12. LORATADINE [Concomitant]
     Dosage: TABS

REACTIONS (3)
  - Musculoskeletal pain [Unknown]
  - Arthralgia [Unknown]
  - Pain in extremity [Unknown]
